FAERS Safety Report 11158585 (Version 1)
Quarter: 2015Q2

REPORT INFORMATION
  Report Type: Report from Study
  Country: AU (occurrence: AU)
  Receive Date: 20150603
  Receipt Date: 20150603
  Transmission Date: 20150821
  Serious: Yes (Hospitalization, Other)
  Sender: FDA-Public Use
  Company Number: AU-ABBVIE-15P-008-1399382-00

PATIENT
  Age: 73 Year
  Sex: Female

DRUGS (2)
  1. DUODOPA [Suspect]
     Active Substance: CARBIDOPA\LEVODOPA
     Indication: PARKINSON^S DISEASE
     Dosage: 24 HOUR THERAPY
     Route: 050
     Dates: start: 20150206
  2. TRIMETHOPRIM. [Concomitant]
     Active Substance: TRIMETHOPRIM
     Indication: PROPHYLAXIS

REACTIONS (5)
  - Hallucination [Recovering/Resolving]
  - Knee arthroplasty [Unknown]
  - Hallucination, visual [Unknown]
  - Hypotension [Unknown]
  - Confusional state [Unknown]

NARRATIVE: CASE EVENT DATE: 20150528
